FAERS Safety Report 8839207 (Version 1)
Quarter: 2012Q4

REPORT INFORMATION
  Report Type: 
  Country: US (occurrence: US)
  Receive Date: 20121015
  Receipt Date: 20121015
  Transmission Date: 20130627
  Serious: Yes (Hospitalization, Other)
  Sender: FDA-Public Use
  Company Number: US-GENZYME-RENA-1001646

PATIENT
  Age: 84 None
  Sex: Female

DRUGS (9)
  1. RENVELA [Suspect]
     Indication: HYPERPHOSPHATAEMIA
     Dosage: 7.2 g, qd (0.8 g, 3 tablets with each meal)
     Route: 065
     Dates: start: 2010
  2. RENVELA [Suspect]
     Indication: HYPERPHOSPHATAEMIA
     Dosage: 7.2 g, qd (one packet with each meal)
     Route: 065
     Dates: start: 201209
  3. CALCIUM ACETATE [Concomitant]
     Indication: PRODUCT USED FOR UNKNOWN INDICATION
     Dosage: UNK (with meals and snacks)
     Route: 065
  4. THYROID REPLACEMENT MEDICATION [Concomitant]
     Indication: HYPOTHYROIDISM
     Dosage: UNK
     Route: 065
  5. ULORIC [Concomitant]
     Indication: GOUT
     Dosage: UNK
     Route: 065
  6. VITAMIN B [Concomitant]
     Indication: PRODUCT USED FOR UNKNOWN INDICATION
     Dosage: UNK
     Route: 065
  7. FOLIC ACID [Concomitant]
     Indication: PRODUCT USED FOR UNKNOWN INDICATION
     Dosage: UNK
     Route: 065
  8. RENAL VITAMINS [Concomitant]
     Indication: PRODUCT USED FOR UNKNOWN INDICATION
     Dosage: UNK
     Route: 065
  9. MITADRINE [Concomitant]
     Indication: PRODUCT USED FOR UNKNOWN INDICATION
     Dosage: UNK
     Route: 065

REACTIONS (4)
  - Cerebrovascular accident [Unknown]
  - Oxygen saturation decreased [Unknown]
  - Intestinal obstruction [Not Recovered/Not Resolved]
  - Hyperphosphataemia [Unknown]
